FAERS Safety Report 4470712-2 (Version None)
Quarter: 2004Q4

REPORT INFORMATION
  Report Type: 
  Country: None (occurrence: None)
  Receive Date: 20041005
  Receipt Date: 20040921
  Transmission Date: 20050328
  Serious: Yes (Death, Hospitalization)
  Sender: FDA-Public Use
  Company Number: 209239

PATIENT
  Age: 73 Year
  Sex: Male

DRUGS (2)
  1. AVASTIN [Suspect]
     Indication: COLON CANCER METASTATIC
     Dosage: QOW, INTRAVENOUS
     Route: 042
  2. FLUOROURACIL [Concomitant]

REACTIONS (4)
  - ANEURYSM RUPTURED [None]
  - CEREBRAL HAEMATOMA [None]
  - COMA [None]
  - HAEMORRHAGIC STROKE [None]
